FAERS Safety Report 8545442-8 (Version None)
Quarter: 2012Q3

REPORT INFORMATION
  Report Type: 
  Country: None (occurrence: None)
  Receive Date: 20120727
  Receipt Date: 20111107
  Transmission Date: 20120928
  Serious: No
  Sender: FDA-Public Use
  Company Number: US-ASTRAZENECA-2011SE67067

PATIENT
  Sex: Male

DRUGS (2)
  1. BUPRENORPHINE [Suspect]
     Indication: DRUG ABUSE
     Route: 065
  2. SEROQUEL XR [Suspect]
     Route: 048

REACTIONS (3)
  - HYPERHIDROSIS [None]
  - TONIC CLONIC MOVEMENTS [None]
  - WRONG TECHNIQUE IN DRUG USAGE PROCESS [None]
